FAERS Safety Report 24204028 (Version 1)
Quarter: 2024Q3

REPORT INFORMATION
  Report Type: Spontaneous
  Country: FR (occurrence: FR)
  Receive Date: 20240813
  Receipt Date: 20240813
  Transmission Date: 20241017
  Serious: Yes (Life-Threatening)
  Sender: RANBAXY
  Company Number: FR-AFSSAPS-SE2024000352

PATIENT
  Age: 14 Year
  Sex: Female
  Weight: 47 kg

DRUGS (1)
  1. MORPHINE [Suspect]
     Active Substance: MORPHINE
     Indication: Perioperative analgesia
     Dosage: 1.5 MILLIGRAM, IN TOTAL
     Route: 029
     Dates: start: 20240408, end: 20240408

REACTIONS (4)
  - Incorrect route of product administration [Recovered/Resolved]
  - Accidental overdose [Recovered/Resolved]
  - Coma [Recovered/Resolved]
  - Respiratory distress [Recovered/Resolved]

NARRATIVE: CASE EVENT DATE: 20240408
